FAERS Safety Report 6139194-9 (Version None)
Quarter: 2009Q2

REPORT INFORMATION
  Report Type: 
  Country: None (occurrence: None)
  Receive Date: 20090401
  Receipt Date: 20090320
  Transmission Date: 20091009
  Serious: Yes (Other)
  Sender: FDA-Public Use
  Company Number: US-JNJFOC-20070200528

PATIENT
  Sex: Male
  Weight: 80.29 kg

DRUGS (15)
  1. REMICADE [Suspect]
     Route: 042
  2. REMICADE [Suspect]
     Route: 042
  3. REMICADE [Suspect]
     Route: 042
  4. REMICADE [Suspect]
     Indication: COLITIS ULCERATIVE
     Route: 042
  5. PREDNISONE [Concomitant]
     Indication: COLITIS ULCERATIVE
  6. COLAZAL [Concomitant]
  7. FOLIC ACID [Concomitant]
  8. ZOCOR [Concomitant]
     Indication: BLOOD CHOLESTEROL
  9. PROZAC [Concomitant]
  10. LISINOPRIL [Concomitant]
     Indication: BLOOD PRESSURE
  11. PROTONIX [Concomitant]
  12. MERCAPTOPURINE [Concomitant]
  13. PERCOCET [Concomitant]
  14. VITAMIN D [Concomitant]
  15. CANASA [Concomitant]
     Indication: COLITIS ULCERATIVE

REACTIONS (2)
  - MYODESOPSIA [None]
  - VISION BLURRED [None]
